FAERS Safety Report 8694688 (Version 2)
Quarter: 2013Q2

REPORT INFORMATION
  Report Type: Spontaneous
  Country: US (occurrence: None)
  Receive Date: 20120713
  Receipt Date: 20130530
  Transmission Date: 20140414
  Serious: Yes (Other)
  Sender: FDA-Public Use
  Company Number: CC-12-029

PATIENT
  Age: 60 Year
  Sex: Female
  Weight: 70.31 kg

DRUGS (4)
  1. METOCLOPRAMIDE [Suspect]
     Indication: GASTRIC DISORDER
     Dosage: 5 ML EVERY 4 HOURS
  2. PROTONIX [Concomitant]
  3. DILANTIN [Concomitant]
  4. IV SOLUTION [Concomitant]

REACTIONS (5)
  - PAIN IN EXTREMITY [None]
  - HYPOAESTHESIA [None]
  - MUSCLE SPASMS [None]
  - Balance disorder [None]
  - Gastric disorder [None]
